FAERS Safety Report 5472503-2 (Version None)
Quarter: 2007Q3

REPORT INFORMATION
  Report Type: 
  Country: None (occurrence: None)
  Receive Date: 20070927
  Receipt Date: 20070917
  Transmission Date: 20080115
  Serious: Yes (Death)
  Sender: FDA-Public Use
  Company Number: B0488283A

PATIENT
  Age: 50 Year
  Sex: Female

DRUGS (4)
  1. ACETAMINOPHEN [Suspect]
  2. BROMAZEPAM (FORMULATION UNKNOWN) (BROMAZEPAM) (GENERIC) [Suspect]
  3. DEXTROPROPOXYPHENE (FORMULATION UNKNOWN) (DEXTROPROPOXYPHENE) [Suspect]
  4. CODEINE (FORMULATION UNKNOWN) (CODEINE) [Suspect]

REACTIONS (3)
  - COMPLETED SUICIDE [None]
  - FALL [None]
  - OVERDOSE [None]
